FAERS Safety Report 8909922 (Version 1)
Quarter: 2012Q4

REPORT INFORMATION
  Report Type: 
  Country: US (occurrence: US)
  Receive Date: 20121114
  Receipt Date: 20121114
  Transmission Date: 20130627
  Serious: No
  Sender: FDA-Public Use
  Company Number: US-ASTRAZENECA-2012SE83333

PATIENT
  Age: 51 Year
  Sex: Male

DRUGS (1)
  1. SEROQUEL XR [Suspect]
     Route: 048

REACTIONS (6)
  - Aggression [Unknown]
  - Bipolar disorder [Unknown]
  - Abnormal behaviour [Unknown]
  - Mood swings [Unknown]
  - Abnormal behaviour [Unknown]
  - Road traffic accident [Unknown]
